FAERS Safety Report 17014548 (Version 3)
Quarter: 2020Q4

REPORT INFORMATION
  Report Type: Spontaneous
  Country: US (occurrence: US)
  Receive Date: 20191111
  Receipt Date: 20201029
  Transmission Date: 20210113
  Serious: Yes (Other)
  Sender: FDA-Public Use
  Company Number: US-UNICHEM PHARMACEUTICALS (USA) INC-UCM201909-000398

PATIENT
  Age: 36 Year
  Sex: Male
  Weight: 83.91 kg

DRUGS (1)
  1. LAMOTRIGINE. [Suspect]
     Active Substance: LAMOTRIGINE
     Indication: EPILEPSY
     Dosage: THE PATIENT WAS TAKING LAMOTRIGINE 100 MG TABLET, 2 TABLETS IN THE MORNING AND 2 TABLETS AT NIGHT.
     Dates: start: 20190801, end: 20190824

REACTIONS (10)
  - Road traffic accident [Recovered/Resolved]
  - Product quality issue [Recovered/Resolved]
  - Somnolence [Recovered/Resolved]
  - Therapy non-responder [Recovered/Resolved]
  - Confusional state [Recovered/Resolved]
  - Pruritus [Unknown]
  - Seizure [Recovered/Resolved]
  - Mood swings [Recovered/Resolved]
  - Anger [Recovered/Resolved]
  - Dizziness [Recovered/Resolved]

NARRATIVE: CASE EVENT DATE: 20190821
